FAERS Safety Report 6844616-1 (Version None)
Quarter: 2010Q2

REPORT INFORMATION
  Report Type: 
  Country: None (occurrence: None)
  Receive Date: 20100629
  Receipt Date: 20100429
  Transmission Date: 20101027
  Serious: No
  Sender: FDA-Public Use
  Company Number: US-WYE-H14878410

PATIENT
  Sex: Female

DRUGS (1)
  1. PRISTIQ [Suspect]
     Dosage: 50 MG FOR TWO WEEKS, THE INCREASED TO 100 MG, ORAL
     Route: 048

REACTIONS (1)
  - DECREASED APPETITE [None]
